FAERS Safety Report 9249385 (Version 3)
Quarter: 2013Q3

REPORT INFORMATION
  Report Type: Spontaneous
  Country: ES (occurrence: ES)
  Receive Date: 20130423
  Receipt Date: 20130813
  Transmission Date: 20140515
  Serious: Yes (Hospitalization, Other)
  Sender: FDA-Public Use
  Company Number: ES-TEVA-400286USA

PATIENT
  Age: 34 Year
  Sex: Female
  Weight: 50 kg

DRUGS (10)
  1. BENDAMUSTIN [Suspect]
     Indication: CHRONIC LYMPHOCYTIC LEUKAEMIA
     Route: 042
  2. BENDAMUSTIN [Suspect]
     Route: 042
  3. BENDAMUSTIN [Suspect]
     Route: 042
  4. BENDAMUSTIN [Suspect]
     Route: 042
     Dates: start: 20130219, end: 20130322
  5. BENDAMUSTIN [Suspect]
     Route: 042
  6. BENDAMUSTIN [Suspect]
     Route: 042
     Dates: end: 20130719
  7. RITUXIMAB [Concomitant]
     Indication: CHRONIC LYMPHOCYTIC LEUKAEMIA
     Dosage: 375-500 MG/M2
     Route: 042
     Dates: start: 20130219, end: 20130320
  8. ALLOPURINOL [Concomitant]
     Indication: TUMOUR LYSIS SYNDROME
     Dosage: 100 MILLIGRAM DAILY;
     Route: 048
     Dates: start: 20130213, end: 20130320
  9. OMEPRAZOLE [Concomitant]
     Indication: PROPHYLAXIS AGAINST GASTROINTESTINAL ULCER
     Dosage: 20 MILLIGRAM DAILY;
     Route: 048
     Dates: start: 20130213
  10. LORAZEPAM [Concomitant]
     Indication: RELAXATION THERAPY
     Dosage: 1 MILLIGRAM DAILY;
     Route: 048
     Dates: start: 20130210

REACTIONS (5)
  - Atypical pneumonia [Recovered/Resolved]
  - Opportunistic infection [Recovered/Resolved]
  - Pyrexia [Unknown]
  - Rash [Recovered/Resolved]
  - Rash [Recovered/Resolved]
